FAERS Safety Report 19273833 (Version 1)
Quarter: 2021Q2

REPORT INFORMATION
  Report Type: Spontaneous
  Country: US (occurrence: US)
  Receive Date: 20210518
  Receipt Date: 20210518
  Transmission Date: 20210717
  Serious: Yes (Hospitalization, Other)
  Sender: FDA-Public Use
  Company Number: None

PATIENT
  Age: 15 Year
  Sex: Female
  Weight: 56 kg

DRUGS (9)
  1. CYCLOPHOSPHAMIDE 800 MG/M2 IV DAYS 1, REPEAT Q21D X4 CYCLES [Concomitant]
     Dates: start: 20190123, end: 20190417
  2. DOXORUBICIN 25 MG/M2 IV DAYS 1?2, REPEAT Q21D X4 CYCLES [Concomitant]
     Dates: start: 20190123, end: 20190417
  3. BLEOMYCIN 10 UNITS/M2 IV DAYS 1 AND 8, REPEAT Q21D X 4 CYCLES [Concomitant]
     Dates: start: 20190123, end: 20190417
  4. NEULASTA 6MG SUBQ Q21DAYS X4 DOSES [Concomitant]
     Dates: start: 20190123, end: 20190417
  5. EMEND 150 MG IV DAY 1 ONLY X5 CYCLES [Concomitant]
     Dates: start: 20190123, end: 20190417
  6. DEXRAZOXANE 250 MG/M2 IV DAYS 1?2, REPEAT EVERY 21 DAYS X3 CYCLES [Concomitant]
     Dates: start: 20190213, end: 20190417
  7. ETOPOSIDE. [Suspect]
     Active Substance: ETOPOSIDE
     Indication: HODGKIN^S DISEASE
     Route: 042
     Dates: start: 20190123, end: 20190125
  8. ETOPOSIDE. [Suspect]
     Active Substance: ETOPOSIDE
     Indication: HODGKIN^S DISEASE
     Route: 042
     Dates: start: 20190213, end: 20190214
  9. VINCRISTINE 1.4 MG/M2 IV DAYS 1 AND 8, REPEAT EVERY 21 DAYS X4 CYCLES [Concomitant]
     Dates: start: 20190123, end: 20190417

REACTIONS (11)
  - Dyspnoea [None]
  - Lip swelling [None]
  - Hypoaesthesia oral [None]
  - Swollen tongue [None]
  - Abdominal pain [None]
  - Angioedema [None]
  - Cough [None]
  - Flushing [None]
  - Oxygen saturation decreased [None]
  - Periorbital oedema [None]
  - Throat tightness [None]

NARRATIVE: CASE EVENT DATE: 20190214
